FAERS Safety Report 8586139-8 (Version None)
Quarter: 2012Q3

REPORT INFORMATION
  Report Type: 
  Country: None (occurrence: None)
  Receive Date: 20120810
  Receipt Date: 20120730
  Transmission Date: 20120928
  Serious: Yes (Other)
  Sender: FDA-Public Use
  Company Number: DE-ROCHE-1095084

PATIENT
  Sex: Male

DRUGS (3)
  1. TELAPREVIR [Suspect]
     Indication: HEPATITIS C
     Dates: start: 20120601
  2. RIBAVIRIN [Suspect]
     Indication: HEPATITIS C
     Dates: start: 20120601
  3. PEGASYS [Suspect]
     Indication: HEPATITIS C
     Dates: start: 20120601

REACTIONS (8)
  - APATHY [None]
  - CARDIAC DISORDER [None]
  - CHILLS [None]
  - ASTHENIA [None]
  - SOMNOLENCE [None]
  - HEADACHE [None]
  - DYSPNOEA [None]
  - MEMORY IMPAIRMENT [None]
